FAERS Safety Report 13178699 (Version 1)
Quarter: 2017Q1

REPORT INFORMATION
  Report Type: Spontaneous
  Country: US (occurrence: US)
  Receive Date: 20170202
  Receipt Date: 20170202
  Transmission Date: 20170428
  Serious: Yes (Hospitalization, Other)
  Sender: FDA-Public Use
  Company Number: US-ZYDUS-013651

PATIENT
  Age: 66 Year
  Sex: Female
  Weight: 95.25 kg

DRUGS (3)
  1. CLOPIDOGREL [Suspect]
     Active Substance: CLOPIDOGREL BISULFATE
     Indication: ANTICOAGULANT THERAPY
     Route: 065
  2. ACETYLSALICYLIC ACID [Suspect]
     Active Substance: ASPIRIN
     Indication: ANTICOAGULANT THERAPY
     Route: 065
  3. WARFARIN [Suspect]
     Active Substance: WARFARIN
     Indication: ANTICOAGULANT THERAPY
     Route: 065

REACTIONS (9)
  - Muscle haemorrhage [Recovered/Resolved]
  - Nerve compression [Recovered/Resolved]
  - Back pain [Recovered/Resolved]
  - Movement disorder [Not Recovered/Not Resolved]
  - Arthralgia [Unknown]
  - Peroneal nerve palsy [Not Recovered/Not Resolved]
  - Sciatic nerve palsy [Unknown]
  - Paraesthesia [Not Recovered/Not Resolved]
  - Hyperaesthesia [Not Recovered/Not Resolved]
